FAERS Safety Report 10357055 (Version 1)
Quarter: 2014Q3

REPORT INFORMATION
  Report Type: Spontaneous
  Country: US (occurrence: None)
  Receive Date: 20140730
  Receipt Date: 20140730
  Transmission Date: 20150326
  Serious: Yes (Life-Threatening, Hospitalization, Disabling, Other)
  Sender: FDA-Public Use
  Company Number: None

PATIENT
  Age: 60 Year
  Sex: Female
  Weight: 142.43 kg

DRUGS (11)
  1. XARELTO [Suspect]
     Active Substance: RIVAROXABAN
     Indication: ATRIAL FIBRILLATION
     Route: 048
     Dates: start: 20131022, end: 20131217
  2. METOPROLOL [Concomitant]
     Active Substance: METOPROLOL
  3. SPIRONDACTONE [Concomitant]
  4. ASPIRIN. [Concomitant]
     Active Substance: ASPIRIN
  5. OVER 60 VITAMINS [Concomitant]
  6. VITAMIN D [Concomitant]
     Active Substance: CHOLECALCIFEROL
  7. FUROSEMIDE. [Concomitant]
     Active Substance: FUROSEMIDE
  8. DIGOX [Concomitant]
     Active Substance: DIGOXIN
  9. MAGNESIUM [Concomitant]
     Active Substance: MAGNESIUM
  10. CRANBERRY PILLS [Concomitant]
  11. HYDROCODONE [Concomitant]
     Active Substance: HYDROCODONE

REACTIONS (2)
  - Renal pain [None]
  - Pneumonia [None]

NARRATIVE: CASE EVENT DATE: 20131214
